FAERS Safety Report 8595913 (Version 2)
Quarter: 2013Q3

REPORT INFORMATION
  Report Type: Spontaneous
  Country: US (occurrence: US)
  Receive Date: 20120605
  Receipt Date: 20130723
  Transmission Date: 20140515
  Serious: Yes (Hospitalization)
  Sender: FDA-Public Use
  Company Number: US-ASTRAZENECA-2012SE35236

PATIENT
  Age: 63 Year
  Sex: Male
  Weight: 99.8 kg

DRUGS (16)
  1. NEXIUM [Suspect]
     Indication: DYSPEPSIA
     Dosage: ONE TIME A DAY
     Route: 048
  2. NEXIUM [Suspect]
     Indication: FLATULENCE
     Dosage: ONE TIME A DAY
     Route: 048
  3. NEXIUM [Suspect]
     Indication: DYSPEPSIA
     Route: 048
     Dates: start: 20100402
  4. NEXIUM [Suspect]
     Indication: FLATULENCE
     Route: 048
     Dates: start: 20100402
  5. ALLOPURINOL [Concomitant]
     Dates: start: 20100402
  6. MELOXICAM [Concomitant]
  7. ACTOS [Concomitant]
     Dates: start: 20100503
  8. VENTOLIN HFA [Concomitant]
     Dates: start: 20100402
  9. GLYB/METFORMIN [Concomitant]
     Dosage: 5-500
     Dates: start: 20100503
  10. METOPROLOL [Concomitant]
     Dates: start: 20100503
  11. DIOVAN [Concomitant]
     Dates: start: 20100402
  12. FEXOFENADINE [Concomitant]
     Dates: start: 20100402
  13. COLCHICINE [Concomitant]
     Dates: start: 20100503
  14. GABAPENTIN [Concomitant]
     Dates: start: 20100402
  15. LYRICA [Concomitant]
     Dates: start: 20100701
  16. ETODOLAC [Concomitant]
     Dates: start: 20101001

REACTIONS (6)
  - Gout [Unknown]
  - Multiple fractures [Unknown]
  - Arthropathy [Unknown]
  - Arthritis [Unknown]
  - Rheumatoid arthritis [Unknown]
  - Osteoporosis [Unknown]
